FAERS Safety Report 7522623-3 (Version None)
Quarter: 2011Q2

REPORT INFORMATION
  Report Type: 
  Country: None (occurrence: None)
  Receive Date: 20110525
  Receipt Date: 20110513
  Transmission Date: 20111010
  Serious: Yes (Hospitalization, Other)
  Sender: FDA-Public Use
  Company Number: 2011P1005488

PATIENT
  Age: 14 Year
  Sex: Male

DRUGS (2)
  1. ANITBIOTIC [Suspect]
  2. SOLODYN [Suspect]
     Indication: ACNE
     Dosage: 80 MG; QD; PO
     Route: 048
     Dates: start: 20110202, end: 20110201

REACTIONS (8)
  - MYELITIS TRANSVERSE [None]
  - MUSCULAR WEAKNESS [None]
  - INFLUENZA LIKE ILLNESS [None]
  - NEUROLOGICAL SYMPTOM [None]
  - URINARY RETENTION [None]
  - INFECTIOUS MONONUCLEOSIS [None]
  - VIRAL INFECTION [None]
  - NEOPLASM [None]
